FAERS Safety Report 15119572 (Version 3)
Quarter: 2018Q3

REPORT INFORMATION
  Report Type: Spontaneous
  Country: US (occurrence: US)
  Receive Date: 20180709
  Receipt Date: 20180810
  Transmission Date: 20181010
  Serious: No
  Sender: FDA-Public Use
  Company Number: US-PFIZER INC-2018275945

PATIENT
  Sex: Female
  Weight: 66 kg

DRUGS (2)
  1. LYRICA [Suspect]
     Active Substance: PREGABALIN
     Indication: NEUROPATHY PERIPHERAL
     Dosage: 100 MG, 3X/DAY
     Route: 048
     Dates: start: 201804
  2. LYRICA [Suspect]
     Active Substance: PREGABALIN
     Dosage: 100 MG, 3X/DAY
     Route: 048
     Dates: start: 201806

REACTIONS (7)
  - Pain [Unknown]
  - Drug ineffective [Not Recovered/Not Resolved]
  - Confusional state [Unknown]
  - Muscle spasms [Unknown]
  - Memory impairment [Unknown]
  - Initial insomnia [Unknown]
  - Pain in extremity [Unknown]

NARRATIVE: CASE EVENT DATE: 201804
